FAERS Safety Report 8763182 (Version 3)
Quarter: 2013Q3

REPORT INFORMATION
  Report Type: Spontaneous
  Country: US (occurrence: US)
  Receive Date: 20120831
  Receipt Date: 20130722
  Transmission Date: 20140515
  Serious: Yes (Other)
  Sender: FDA-Public Use
  Company Number: US-PFIZER INC-2012213303

PATIENT
  Age: 79 Year
  Sex: Female
  Weight: 129.25 kg

DRUGS (14)
  1. LYRICA [Suspect]
     Indication: DIABETIC NEUROPATHY
     Dosage: 50 MG, 2X/DAY
     Route: 048
  2. LYRICA [Suspect]
     Indication: PAIN
     Dosage: 50 MG, 1X/DAY
     Route: 048
     Dates: start: 2009
  3. LYRICA [Suspect]
     Indication: FIBROMYALGIA
     Dosage: 50 MG, 2X/DAY
     Route: 048
  4. LYRICA [Suspect]
     Indication: DIABETIC NEUROPATHY
  5. ARICEPT [Concomitant]
     Indication: DEMENTIA ALZHEIMER^S TYPE
     Dosage: 10 MG, 1X/DAY (TAKE 1 TABLET BY MOUTH ONCE A DAY AT BEDTIME)
     Route: 048
  6. AMITRIPTYLINE HYDROCHLORIDE [Concomitant]
     Dosage: 25 MG DAILY
  7. VICODIN [Concomitant]
     Indication: PAIN
     Dosage: UNK
  8. LANTUS [Concomitant]
     Dosage: 0.4ML DAILY
  9. HUMALOG [Concomitant]
     Dosage: 0.2 ML, 2X/DAY
  10. NAMENDA [Concomitant]
     Dosage: 10 MG, 2X/DAY
  11. FUROSEMIDE [Concomitant]
     Dosage: 40 MG, 1X/DAY
     Route: 048
  12. ATENOLOL [Concomitant]
     Dosage: 25 MG DAILY
  13. METFORMIN [Concomitant]
     Dosage: 1000 MG, 2X/DAY
  14. INSULIN [Concomitant]
     Indication: DIABETES MELLITUS
     Dosage: UNK

REACTIONS (3)
  - Amnesia [Unknown]
  - Drug ineffective [Unknown]
  - Blood test abnormal [Unknown]
